FAERS Safety Report 24168590 (Version 1)
Quarter: 2024Q3

REPORT INFORMATION
  Report Type: Spontaneous
  Country: TW (occurrence: TW)
  Receive Date: 20240802
  Receipt Date: 20240802
  Transmission Date: 20241016
  Serious: Yes (Other)
  Sender: ELI LILLY AND CO
  Company Number: TW-ELI_LILLY_AND_COMPANY-TW202407017764

PATIENT
  Age: 93 Year
  Sex: Male

DRUGS (1)
  1. FORTEO [Suspect]
     Active Substance: TERIPARATIDE
     Indication: Product used for unknown indication
     Dosage: 20 UG, UNKNOWN
     Route: 058
     Dates: start: 2024

REACTIONS (2)
  - Cholelithiasis [Not Recovered/Not Resolved]
  - Dysuria [Not Recovered/Not Resolved]
